FAERS Safety Report 5773657-0 (Version None)
Quarter: 2008Q2

REPORT INFORMATION
  Report Type: 
  Country: None (occurrence: None)
  Receive Date: 20080616
  Receipt Date: 20080514
  Transmission Date: 20081010
  Serious: No
  Sender: FDA-Public Use
  Company Number: US-BAYER-200820735NA

PATIENT
  Age: 21 Year
  Sex: Female
  Weight: 77 kg

DRUGS (1)
  1. MIRENA [Suspect]
     Indication: CONTRACEPTION
     Route: 015
     Dates: start: 20071025

REACTIONS (8)
  - BACK PAIN [None]
  - BREAST MASS [None]
  - BREAST PAIN [None]
  - CHEST PAIN [None]
  - CHILLS [None]
  - HERPES ZOSTER [None]
  - MENORRHAGIA [None]
  - PYREXIA [None]
